FAERS Safety Report 8024046-X (Version None)
Quarter: 2012Q1

REPORT INFORMATION
  Report Type: 
  Country: None (occurrence: None)
  Receive Date: 20120105
  Receipt Date: 20111227
  Transmission Date: 20120608
  Serious: Yes (Hospitalization)
  Sender: FDA-Public Use
  Company Number: US-JNJFOC-20111109286

PATIENT
  Sex: Female
  Weight: 119.75 kg

DRUGS (25)
  1. ASACOL [Concomitant]
     Route: 065
  2. CARVEDILOL [Concomitant]
     Route: 065
  3. PREDNISONE TAB [Concomitant]
     Route: 065
  4. VITAMIN C [Concomitant]
     Route: 065
  5. REMICADE [Suspect]
     Route: 042
     Dates: start: 20110121
  6. ZINC [Concomitant]
     Route: 065
  7. ALL OTHER THERAPEUTIC PRODUCTS [Concomitant]
     Route: 065
  8. PLAQUENIL [Concomitant]
     Indication: RHEUMATOID ARTHRITIS
     Route: 065
     Dates: end: 20110101
  9. PLAQUENIL [Concomitant]
     Route: 065
     Dates: start: 20110101
  10. TRIAMTERENE [Concomitant]
     Dosage: 75/50 MG
     Route: 065
  11. VITAMIN B COMPLEX CAP [Concomitant]
     Route: 065
  12. REMICADE [Suspect]
     Route: 042
     Dates: start: 20110201
  13. CYCLOBENZAPRINE [Concomitant]
     Route: 065
  14. CALCIUM ACETATE [Concomitant]
     Route: 065
  15. PROBIOTIC VITAMIN [Concomitant]
     Route: 065
  16. CEPHALEXIN [Concomitant]
     Route: 065
  17. SYNTHROID [Concomitant]
     Route: 065
  18. WARFARIN SODIUM [Concomitant]
     Dosage: 10 MG DAILY X 10 DAYS
     Route: 065
  19. REMICADE [Suspect]
     Indication: CROHN'S DISEASE
     Route: 042
     Dates: end: 20110901
  20. REMICADE [Suspect]
     Route: 042
     Dates: start: 20110204
  21. REMICADE [Suspect]
     Route: 042
     Dates: start: 20111001, end: 20111001
  22. TRAMADOL HCL [Concomitant]
     Route: 065
  23. FLAX SEED OIL [Concomitant]
     Route: 065
  24. VITAMIN B-12 [Concomitant]
     Route: 065
  25. HOME OXYGEN THERAPY [Concomitant]
     Route: 065

REACTIONS (16)
  - RASH [None]
  - ARTHRALGIA [None]
  - CARDIAC DISORDER [None]
  - LEFT VENTRICULAR DYSFUNCTION [None]
  - COLITIS [None]
  - EJECTION FRACTION DECREASED [None]
  - OEDEMA PERIPHERAL [None]
  - MYALGIA [None]
  - CARDIAC FAILURE CONGESTIVE [None]
  - CONGESTIVE CARDIOMYOPATHY [None]
  - BRONCHITIS [None]
  - INFUSION RELATED REACTION [None]
  - PERICARDIAL EFFUSION [None]
  - TACHYCARDIA [None]
  - THERAPEUTIC RESPONSE DECREASED [None]
  - INCISIONAL DRAINAGE [None]
